FAERS Safety Report 6380824-4 (Version None)
Quarter: 2009Q3

REPORT INFORMATION
  Report Type: 
  Country: None (occurrence: None)
  Receive Date: 20090929
  Receipt Date: 20090923
  Transmission Date: 20100115
  Serious: Yes (Disabling)
  Sender: FDA-Public Use
  Company Number: A0627691A

PATIENT
  Age: 79 Year
  Sex: Male

DRUGS (9)
  1. ADVAIR DISKUS 100/50 [Suspect]
     Indication: CHRONIC OBSTRUCTIVE PULMONARY DISEASE
     Route: 055
     Dates: end: 20090101
  2. ADVAIR DISKUS 100/50 [Suspect]
     Indication: ASTHMA
     Dosage: 1PUFF TWICE PER DAY
     Route: 055
     Dates: start: 20060501
  3. FLOMAX [Concomitant]
  4. PROSCAR [Concomitant]
  5. SINGULAIR [Concomitant]
  6. IBUPROFEN [Concomitant]
  7. TYLENOL (CAPLET) [Concomitant]
  8. SYNTHROID [Concomitant]
  9. ATENOLOL [Concomitant]

REACTIONS (5)
  - APHONIA [None]
  - DIAGNOSTIC PROCEDURE [None]
  - DYSPHONIA [None]
  - PHARYNGITIS [None]
  - SECRETION DISCHARGE [None]
